FAERS Safety Report 23585103 (Version 3)
Quarter: 2024Q2

REPORT INFORMATION
  Report Type: Spontaneous
  Country: DE (occurrence: DE)
  Receive Date: 20240301
  Receipt Date: 20240404
  Transmission Date: 20240716
  Serious: Yes (Hospitalization)
  Sender: FDA-Public Use
  Company Number: None

PATIENT
  Age: 56 Year
  Sex: Male

DRUGS (3)
  1. FENTANYL [Suspect]
     Active Substance: FENTANYL\FENTANYL CITRATE
     Indication: Spinal pain
     Route: 062
  2. TRAMADOL [Suspect]
     Active Substance: TRAMADOL\TRAMADOL HYDROCHLORIDE
     Indication: Spinal pain
  3. BUPRENORPHINE [Suspect]
     Active Substance: BUPRENORPHINE
     Indication: Spinal pain
     Dosage: (PLASTER) FOR 96 HOURS. DOSE: 70
     Route: 062
     Dates: start: 202312, end: 202312

REACTIONS (7)
  - Adverse drug reaction [Unknown]
  - Cold sweat [Unknown]
  - Application site pustules [Unknown]
  - Application site oedema [Unknown]
  - Drug ineffective [Unknown]
  - Skin injury [Unknown]
  - Application site pruritus [Unknown]

NARRATIVE: CASE EVENT DATE: 20231201
